FAERS Safety Report 13188942 (Version 2)
Quarter: 2017Q1

REPORT INFORMATION
  Report Type: Spontaneous
  Country: JP (occurrence: JP)
  Receive Date: 20170206
  Receipt Date: 20170308
  Transmission Date: 20170428
  Serious: Yes (Other)
  Sender: FDA-Public Use
  Company Number: JP-TEVA-734259ISR

PATIENT
  Age: 6 Decade
  Sex: Female

DRUGS (1)
  1. BENET 17.5 MG [Suspect]
     Active Substance: RISEDRONATE SODIUM
     Route: 048

REACTIONS (1)
  - Multiple fractures [Unknown]
